FAERS Safety Report 24613008 (Version 1)
Quarter: 2024Q4

REPORT INFORMATION
  Report Type: Spontaneous
  Country: FR (occurrence: FR)
  Receive Date: 20241113
  Receipt Date: 20241113
  Transmission Date: 20250115
  Serious: Yes (Hospitalization)
  Sender: PFIZER
  Company Number: None

PATIENT
  Age: 61 Year
  Sex: Male
  Weight: 91 kg

DRUGS (7)
  1. IRINOTECAN HYDROCHLORIDE [Suspect]
     Active Substance: IRINOTECAN HYDROCHLORIDE
     Indication: Pancreatic carcinoma metastatic
     Dosage: 300 MG, CYCLIC
     Route: 042
     Dates: start: 20241014, end: 20241014
  2. OXALIPLATIN [Suspect]
     Active Substance: OXALIPLATIN
     Indication: Pancreatic carcinoma metastatic
     Dosage: 119 MG, CYCLIC
     Route: 042
     Dates: start: 20241014, end: 20241014
  3. FLUOROURACIL [Suspect]
     Active Substance: FLUOROURACIL
     Indication: Pancreatic carcinoma metastatic
     Dosage: 4800 MG, CYCLIC
     Route: 042
     Dates: start: 20241014, end: 20241014
  4. GABAPENTIN [Concomitant]
     Active Substance: GABAPENTIN
     Dosage: 300 MG, 2X/DAY
  5. PENICILLIN V [Concomitant]
     Active Substance: PENICILLIN V
     Dosage: IN THE MORNING AND IN THE EVENING
  6. PANCRELIPASE [Concomitant]
     Active Substance: PANCRELIPASE
     Dosage: 40000 IU, 3X/DAY
  7. CREON [Concomitant]
     Active Substance: PANCRELIPASE AMYLASE\PANCRELIPASE LIPASE\PANCRELIPASE PROTEASE
     Dosage: 25000 IU

REACTIONS (2)
  - Pancreatitis acute [Recovered/Resolved]
  - Off label use [Unknown]

NARRATIVE: CASE EVENT DATE: 20241014
